FAERS Safety Report 8534463-7 (Version None)
Quarter: 2012Q3

REPORT INFORMATION
  Report Type: 
  Country: None (occurrence: None)
  Receive Date: 20120712
  Receipt Date: 20120629
  Transmission Date: 20120928
  Serious: Yes (Other)
  Sender: FDA-Public Use
  Company Number: IMP_05925_2012

PATIENT
  Age: 87 Year
  Sex: Male

DRUGS (1)
  1. GALANTAMINE HYDROBROMI [Suspect]
     Indication: DEMENTIA

REACTIONS (2)
  - TREMOR [None]
  - MYOCLONUS [None]
